FAERS Safety Report 18324493 (Version 2)
Quarter: 2025Q2

REPORT INFORMATION
  Report Type: Spontaneous
  Country: DE (occurrence: DE)
  Receive Date: 20200929
  Receipt Date: 20250523
  Transmission Date: 20250716
  Serious: Yes (Hospitalization)
  Sender: MYLAN
  Company Number: DE-ADRED-05459-01

PATIENT
  Age: 81 Year
  Sex: Male
  Weight: 90 kg

DRUGS (44)
  1. SPIRONOLACTONE [Suspect]
     Active Substance: SPIRONOLACTONE
     Indication: Product used for unknown indication
     Dosage: 50 MG, 0-0.5-0-0, TABLETTEN
  2. SPIRONOLACTONE [Suspect]
     Active Substance: SPIRONOLACTONE
     Dosage: 50 MG, 0-0.5-0-0, TABLETTEN
     Route: 048
  3. SPIRONOLACTONE [Suspect]
     Active Substance: SPIRONOLACTONE
     Dosage: 50 MG, 0-0.5-0-0, TABLETTEN
     Route: 048
  4. SPIRONOLACTONE [Suspect]
     Active Substance: SPIRONOLACTONE
     Dosage: 50 MG, 0-0.5-0-0, TABLETTEN
  5. RAMIPRIL [Suspect]
     Active Substance: RAMIPRIL
     Indication: Product used for unknown indication
     Dosage: 5 MG, 0-0-0.5-0, TABLETTEN
  6. RAMIPRIL [Suspect]
     Active Substance: RAMIPRIL
     Dosage: 5 MG, 0-0-0.5-0, TABLETTEN
     Route: 048
  7. RAMIPRIL [Suspect]
     Active Substance: RAMIPRIL
     Dosage: 5 MG, 0-0-0.5-0, TABLETTEN
     Route: 048
  8. RAMIPRIL [Suspect]
     Active Substance: RAMIPRIL
     Dosage: 5 MG, 0-0-0.5-0, TABLETTEN
  9. FEBUXOSTAT [Suspect]
     Active Substance: FEBUXOSTAT
     Indication: Product used for unknown indication
     Dosage: 80 MG, 0-0.5-0-0, TABLETTEN
  10. FEBUXOSTAT [Suspect]
     Active Substance: FEBUXOSTAT
     Dosage: 80 MG, 0-0.5-0-0, TABLETTEN
     Route: 048
  11. FEBUXOSTAT [Suspect]
     Active Substance: FEBUXOSTAT
     Dosage: 80 MG, 0-0.5-0-0, TABLETTEN
     Route: 048
  12. FEBUXOSTAT [Suspect]
     Active Substance: FEBUXOSTAT
     Dosage: 80 MG, 0-0.5-0-0, TABLETTEN
  13. SITAGLIPTIN [Suspect]
     Active Substance: SITAGLIPTIN
     Indication: Product used for unknown indication
     Dosage: 50 MILLIGRAM, QD (0-1-0-0, TABLETTEN)
  14. SITAGLIPTIN [Suspect]
     Active Substance: SITAGLIPTIN
     Dosage: 50 MILLIGRAM, QD (0-1-0-0, TABLETTEN)
     Route: 048
  15. SITAGLIPTIN [Suspect]
     Active Substance: SITAGLIPTIN
     Dosage: 50 MILLIGRAM, QD (0-1-0-0, TABLETTEN)
     Route: 048
  16. SITAGLIPTIN [Suspect]
     Active Substance: SITAGLIPTIN
     Dosage: 50 MILLIGRAM, QD (0-1-0-0, TABLETTEN)
  17. CARBIDOPA\LEVODOPA [Concomitant]
     Active Substance: CARBIDOPA\LEVODOPA
     Dosage: 25|100 MG, 1-1-1-1, TABLETTEN
  18. CARBIDOPA\LEVODOPA [Concomitant]
     Active Substance: CARBIDOPA\LEVODOPA
     Dosage: 25|100 MG, 1-1-1-1, TABLETTEN
     Route: 048
  19. CARBIDOPA\LEVODOPA [Concomitant]
     Active Substance: CARBIDOPA\LEVODOPA
     Dosage: 25|100 MG, 1-1-1-1, TABLETTEN
     Route: 048
  20. CARBIDOPA\LEVODOPA [Concomitant]
     Active Substance: CARBIDOPA\LEVODOPA
     Dosage: 25|100 MG, 1-1-1-1, TABLETTEN
  21. TORSEMIDE [Concomitant]
     Active Substance: TORSEMIDE
     Dosage: 20 MG, 1-1-0-0, TABLETTEN
  22. TORSEMIDE [Concomitant]
     Active Substance: TORSEMIDE
     Dosage: 20 MG, 1-1-0-0, TABLETTEN
     Route: 048
  23. TORSEMIDE [Concomitant]
     Active Substance: TORSEMIDE
     Dosage: 20 MG, 1-1-0-0, TABLETTEN
     Route: 048
  24. TORSEMIDE [Concomitant]
     Active Substance: TORSEMIDE
     Dosage: 20 MG, 1-1-0-0, TABLETTEN
  25. PRAMIPEXOL                         /01356401/ [Concomitant]
     Dosage: 0.18 MG, 1-1-0-1, TABLETTEN
  26. PRAMIPEXOL                         /01356401/ [Concomitant]
     Dosage: 0.18 MG, 1-1-0-1, TABLETTEN
     Route: 048
  27. PRAMIPEXOL                         /01356401/ [Concomitant]
     Dosage: 0.18 MG, 1-1-0-1, TABLETTEN
     Route: 048
  28. PRAMIPEXOL                         /01356401/ [Concomitant]
     Dosage: 0.18 MG, 1-1-0-1, TABLETTEN
  29. LEVOTHYROXINE SODIUM [Concomitant]
     Active Substance: LEVOTHYROXINE SODIUM
     Dosage: 75 ?G, 1-0-0-0, TABLETTEN
  30. LEVOTHYROXINE SODIUM [Concomitant]
     Active Substance: LEVOTHYROXINE SODIUM
     Dosage: 75 ?G, 1-0-0-0, TABLETTEN
     Route: 048
  31. LEVOTHYROXINE SODIUM [Concomitant]
     Active Substance: LEVOTHYROXINE SODIUM
     Dosage: 75 ?G, 1-0-0-0, TABLETTEN
     Route: 048
  32. LEVOTHYROXINE SODIUM [Concomitant]
     Active Substance: LEVOTHYROXINE SODIUM
     Dosage: 75 ?G, 1-0-0-0, TABLETTEN
  33. BUDESONIDE\FORMOTEROL FUMARATE [Concomitant]
     Active Substance: BUDESONIDE\FORMOTEROL FUMARATE
     Dosage: 200|6 ?G, 1-0-1-0, DOSIERAEROSOL
  34. BUDESONIDE\FORMOTEROL FUMARATE [Concomitant]
     Active Substance: BUDESONIDE\FORMOTEROL FUMARATE
     Dosage: 200|6 ?G, 1-0-1-0, DOSIERAEROSOL
  35. BUDESONIDE\FORMOTEROL FUMARATE [Concomitant]
     Active Substance: BUDESONIDE\FORMOTEROL FUMARATE
     Dosage: 200|6 ?G, 1-0-1-0, DOSIERAEROSOL
  36. BUDESONIDE\FORMOTEROL FUMARATE [Concomitant]
     Active Substance: BUDESONIDE\FORMOTEROL FUMARATE
     Dosage: 200|6 ?G, 1-0-1-0, DOSIERAEROSOL
  37. PREDNISOLON                        /00016201/ [Concomitant]
     Dosage: 2 MG, 0-0-0-1, TABLETTEN
  38. PREDNISOLON                        /00016201/ [Concomitant]
     Dosage: 2 MG, 0-0-0-1, TABLETTEN
     Route: 048
  39. PREDNISOLON                        /00016201/ [Concomitant]
     Dosage: 2 MG, 0-0-0-1, TABLETTEN
     Route: 048
  40. PREDNISOLON                        /00016201/ [Concomitant]
     Dosage: 2 MG, 0-0-0-1, TABLETTEN
  41. AMANTADIN                          /00055902/ [Concomitant]
     Dosage: 100 MG, 1-0-0-0, TABLETTEN
  42. AMANTADIN                          /00055902/ [Concomitant]
     Dosage: 100 MG, 1-0-0-0, TABLETTEN
     Route: 048
  43. AMANTADIN                          /00055902/ [Concomitant]
     Dosage: 100 MG, 1-0-0-0, TABLETTEN
     Route: 048
  44. AMANTADIN                          /00055902/ [Concomitant]
     Dosage: 100 MG, 1-0-0-0, TABLETTEN

REACTIONS (3)
  - Oedema peripheral [Unknown]
  - Fatigue [Unknown]
  - General physical health deterioration [Unknown]
